FAERS Safety Report 13587298 (Version 1)
Quarter: 2017Q2

REPORT INFORMATION
  Report Type: Spontaneous
  Country: FR (occurrence: FR)
  Receive Date: 20170526
  Receipt Date: 20170526
  Transmission Date: 20170830
  Serious: Yes (Congenital Anomaly)
  Sender: FDA-Public Use
  Company Number: PHHY2017FR074449

PATIENT
  Age: 0 Day
  Sex: Female
  Weight: 2.62 kg

DRUGS (8)
  1. RIVOTRIL [Suspect]
     Active Substance: CLONAZEPAM
     Indication: FOETAL EXPOSURE DURING PREGNANCY
     Dosage: MATERNAL DOSE: 2 MG, 5 DF PER DAY
     Route: 064
     Dates: start: 201403, end: 20140807
  2. URBANYL [Suspect]
     Active Substance: CLOBAZAM
     Indication: FOETAL EXPOSURE DURING PREGNANCY
     Dosage: MATERNAL DOSE: 20 MG BID
     Route: 064
     Dates: end: 201403
  3. TEGRETOL [Suspect]
     Active Substance: CARBAMAZEPINE
     Indication: FOETAL EXPOSURE DURING PREGNANCY
     Dosage: MATERNAL DOSE: 900 MG BID
     Route: 064
     Dates: start: 20140320, end: 20140807
  4. LAMICTAL [Suspect]
     Active Substance: LAMOTRIGINE
     Indication: FOETAL EXPOSURE DURING PREGNANCY
     Dosage: MATERNAL DOSE: 25 MG QD
     Route: 064
     Dates: start: 20140320
  5. FOLIC ACID. [Concomitant]
     Active Substance: FOLIC ACID
     Indication: FOETAL EXPOSURE DURING PREGNANCY
     Route: 064
  6. TEGRETOL [Suspect]
     Active Substance: CARBAMAZEPINE
     Indication: FOETAL EXPOSURE DURING PREGNANCY
     Dosage: MATERNAL DOSE: 400 MG BID
     Route: 064
     Dates: end: 20140320
  7. LAMICTAL [Suspect]
     Active Substance: LAMOTRIGINE
     Dosage: MATERNAL DOSE: 100 MG
     Route: 064
     Dates: end: 20140807
  8. GARDENAL [Suspect]
     Active Substance: PHENOBARBITAL
     Indication: FOETAL EXPOSURE DURING PREGNANCY
     Dosage: MATERNAL DOSE: 100 MG QD
     Route: 064
     Dates: start: 20140319, end: 20140807

REACTIONS (3)
  - Congenital megaureter [Not Recovered/Not Resolved]
  - Tremor [Recovered/Resolved]
  - Premature baby [Recovered/Resolved]

NARRATIVE: CASE EVENT DATE: 20140807
